FAERS Safety Report 8516860-9 (Version None)
Quarter: 2012Q2

REPORT INFORMATION
  Report Type: 
  Country: None (occurrence: None)
  Receive Date: 20120406
  Receipt Date: 20091229
  Transmission Date: 20120825
  Serious: Yes (Other)
  Sender: FDA-Public Use
  Company Number: PHHY2009US56173

PATIENT
  Age: 66 Year
  Sex: Female
  Weight: 113.4 kg

DRUGS (10)
  1. METFFORMIN HYDROCHLORIDE [Concomitant]
  2. ASPIRIN [Concomitant]
  3. ASCORBIC ACID [Concomitant]
  4. COLACE (DOCUSATE SODIUM) [Concomitant]
  5. TASIGNA [Suspect]
     Indication: GASTROINTESTINAL STROMAL TUMOUR
     Dosage: 400 MG, BID,  400 MG, Q12H, ORAL
     Route: 048
     Dates: start: 20090212
  6. TASIGNA [Suspect]
     Indication: GASTROINTESTINAL STROMAL TUMOUR
     Dosage: 400 MG, BID,  400 MG, Q12H, ORAL
     Route: 048
     Dates: start: 20091126
  7. HYDROCHLOROTHIAZIDE [Concomitant]
  8. MIRALAX [Concomitant]
  9. POTASSIUM (POTASSIUM) [Concomitant]
  10. MILK OF MAGNESIS (MAGNESIUM HYDROXIDE) [Concomitant]

REACTIONS (1)
  - HYPERGLYCAEMIA [None]
